FAERS Safety Report 21799368 (Version 1)
Quarter: 2022Q4

REPORT INFORMATION
  Report Type: Spontaneous
  Country: US (occurrence: None)
  Receive Date: 20221229
  Receipt Date: 20221229
  Transmission Date: 20230113
  Serious: No
  Sender: FDA-Public Use
  Company Number: None

PATIENT
  Age: 47 Year
  Sex: Female
  Weight: 140.61 kg

DRUGS (12)
  1. PROMACTA [Suspect]
     Active Substance: ELTROMBOPAG OLAMINE
     Indication: Immune thrombocytopenia
     Dosage: FREQUENCY : DAILY;?
     Route: 048
  2. MEMANTINE [Concomitant]
     Active Substance: MEMANTINE
  3. ONDANSETRON [Concomitant]
     Active Substance: ONDANSETRON
  4. PEPCID [Concomitant]
     Active Substance: FAMOTIDINE
  5. PREDNISONE [Concomitant]
     Active Substance: PREDNISONE
  6. PREGABALIN [Concomitant]
     Active Substance: PREGABALIN
  7. SUMATRIPTAN SUCCINATE [Concomitant]
     Active Substance: SUMATRIPTAN SUCCINATE
  8. TEMOZOLOMIDE [Concomitant]
     Active Substance: TEMOZOLOMIDE
  9. VIMPAT [Concomitant]
     Active Substance: LACOSAMIDE
  10. VITAMIN D3 [Concomitant]
     Active Substance: CHOLECALCIFEROL
  11. BUTALBITAL, ACETAMINOPHEN, AND CAFFEINE [Concomitant]
     Active Substance: ACETAMINOPHEN\BUTALBITAL\CAFFEINE
  12. ACETAMINOPHEN\HYDROCODONE [Concomitant]
     Active Substance: ACETAMINOPHEN\HYDROCODONE

REACTIONS (1)
  - Drug ineffective [None]
